FAERS Safety Report 5502912-4 (Version None)
Quarter: 2007Q4

REPORT INFORMATION
  Report Type: 
  Country: None (occurrence: None)
  Receive Date: 20071031
  Receipt Date: 20071025
  Transmission Date: 20080405
  Serious: Yes (Other)
  Sender: FDA-Public Use
  Company Number: A0659372A

PATIENT
  Age: 81 Year
  Sex: Male
  Weight: 81.4 kg

DRUGS (9)
  1. COREG [Suspect]
     Indication: DRUG USE FOR UNKNOWN INDICATION
     Dates: start: 20061101, end: 20070720
  2. ZOCOR [Concomitant]
  3. ECOTRIN [Concomitant]
  4. LASIX [Concomitant]
  5. ENALAPRIL MALEATE [Concomitant]
  6. ALPRAZOLAM [Concomitant]
  7. COUMADIN [Concomitant]
  8. LAVAXIN [Concomitant]
  9. DIPYRIDAMOLE [Concomitant]

REACTIONS (1)
  - PSORIASIS [None]
